FAERS Safety Report 9170438 (Version 1)
Quarter: 2013Q1

REPORT INFORMATION
  Report Type: Spontaneous
  Country: US (occurrence: None)
  Receive Date: 20130315
  Receipt Date: 20130315
  Transmission Date: 20140127
  Serious: No
  Sender: FDA-Public Use
  Company Number: None

PATIENT
  Age: 30 Year
  Sex: Male
  Weight: 76.2 kg

DRUGS (2)
  1. FLUTICASONE PROPIONATE [Suspect]
     Indication: RHINITIS ALLERGIC
     Dosage: 50MCG EACH NOSTRIL, QD, NASAL
     Route: 045
     Dates: start: 20130101, end: 20130224
  2. LORATADINE [Concomitant]

REACTIONS (2)
  - Blepharospasm [None]
  - Migraine [None]
